FAERS Safety Report 9140426 (Version 2)
Quarter: 2013Q2

REPORT INFORMATION
  Report Type: Spontaneous
  Country: US (occurrence: US)
  Receive Date: 20130305
  Receipt Date: 20130416
  Transmission Date: 20140414
  Serious: Yes (Other)
  Sender: FDA-Public Use
  Company Number: US-BAYER-2013-026830

PATIENT
  Age: 17 Year
  Sex: Female
  Weight: 63.5 kg

DRUGS (1)
  1. MIRENA [Suspect]
     Indication: CONTRACEPTION
     Dosage: 20 MCG/24HR, CONT
     Route: 015
     Dates: start: 20110319, end: 20130308

REACTIONS (6)
  - Device physical property issue [None]
  - Device issue [None]
  - Vomiting in pregnancy [None]
  - Habitual abortion [None]
  - Pregnancy with contraceptive device [None]
  - Device expulsion [None]
